FAERS Safety Report 4571726-4 (Version None)
Quarter: 2005Q1

REPORT INFORMATION
  Report Type: 
  Country: None (occurrence: None)
  Receive Date: 20050202
  Receipt Date: 20050202
  Transmission Date: 20050727
  Serious: No
  Sender: FDA-Public Use
  Company Number: None

PATIENT
  Sex: Female
  Weight: 74 kg

DRUGS (1)
  1. ZOMETA [Suspect]
     Dosage: 4MG  Q21DAYS   INTRAVENOU
     Route: 042
     Dates: start: 20020801, end: 20050101

REACTIONS (2)
  - JAW DISORDER [None]
  - NECROSIS [None]
